FAERS Safety Report 8917869 (Version 1)
Quarter: 2012Q4

REPORT INFORMATION
  Report Type: 
  Country: US (occurrence: US)
  Receive Date: 20121120
  Receipt Date: 20121120
  Transmission Date: 20130627
  Serious: No
  Sender: FDA-Public Use
  Company Number: US-ASTRAZENECA-2012SE15347

PATIENT
  Age: 54 Year
  Sex: Female
  Weight: 104.3 kg

DRUGS (8)
  1. NEXIUM [Suspect]
     Indication: GASTROOESOPHAGEAL REFLUX DISEASE
     Route: 048
  2. NEXIUM [Suspect]
     Indication: GASTROOESOPHAGEAL REFLUX DISEASE
     Route: 048
  3. NEXIUM [Suspect]
     Indication: GASTROOESOPHAGEAL REFLUX DISEASE
     Route: 048
  4. NEXIUM [Suspect]
     Indication: GASTROOESOPHAGEAL REFLUX DISEASE
     Route: 048
  5. PHENERGAN [Concomitant]
     Indication: PAIN
  6. PHENERGAN [Concomitant]
     Indication: NAUSEA
  7. PHENERGAN [Concomitant]
     Indication: VOMITING
  8. DIFLUCAN [Concomitant]
     Indication: FUNGAL INFECTION

REACTIONS (9)
  - Dyspepsia [Unknown]
  - Dysentery [Unknown]
  - Weight increased [Unknown]
  - Dyspepsia [Unknown]
  - Fungal infection [Unknown]
  - Nausea [Unknown]
  - Vomiting [Unknown]
  - Inappropriate schedule of drug administration [Unknown]
  - Drug effect incomplete [Unknown]
